FAERS Safety Report 8974909 (Version 5)
Quarter: 2014Q4

REPORT INFORMATION
  Report Type: Spontaneous
  Country: US (occurrence: US)
  Receive Date: 20121220
  Receipt Date: 20141029
  Transmission Date: 20150529
  Serious: Yes (Hospitalization, Other)
  Sender: FDA-Public Use
  Company Number: US-BAYER-2012-133495

PATIENT
  Age: 24 Year
  Sex: Female
  Weight: 59.41 kg

DRUGS (3)
  1. PERCOCET [Concomitant]
     Active Substance: ACETAMINOPHEN\OXYCODONE HYDROCHLORIDE
  2. MIRENA [Suspect]
     Active Substance: LEVONORGESTREL
     Indication: CONTRACEPTION
     Dosage: 20 MCG/24HR, CONT
     Route: 015
     Dates: start: 20120913, end: 20120928
  3. ALBUTEROL. [Concomitant]
     Active Substance: ALBUTEROL
     Dosage: UNK UNK, PRN

REACTIONS (12)
  - Uterine perforation [Recovering/Resolving]
  - Device dislocation [Recovering/Resolving]
  - Uterine scar [None]
  - Anxiety [Not Recovered/Not Resolved]
  - Pain [Recovering/Resolving]
  - Fear [Not Recovered/Not Resolved]
  - Abortion spontaneous [None]
  - Emotional distress [Not Recovered/Not Resolved]
  - Procedural pain [Not Recovered/Not Resolved]
  - Device difficult to use [None]
  - Injury [Recovering/Resolving]
  - Infertility female [None]

NARRATIVE: CASE EVENT DATE: 201209
